FAERS Safety Report 23626126 (Version 1)
Quarter: 2024Q1

REPORT INFORMATION
  Report Type: Spontaneous
  Country: US (occurrence: None)
  Receive Date: 20240312
  Receipt Date: 20240312
  Transmission Date: 20240410
  Serious: Yes (Other)
  Sender: FDA-Public Use
  Company Number: None

PATIENT
  Age: 60 Year
  Sex: Male

DRUGS (1)
  1. LENALIDOMIDE [Suspect]
     Active Substance: LENALIDOMIDE
     Indication: Plasma cell myeloma
     Dosage: 15MG DAILY X ORAL
     Route: 048
     Dates: start: 20200626, end: 20240110

REACTIONS (3)
  - Arthralgia [None]
  - Neuropathy peripheral [None]
  - Therapy cessation [None]

NARRATIVE: CASE EVENT DATE: 20240103
